FAERS Safety Report 5582638-1 (Version None)
Quarter: 2008Q1

REPORT INFORMATION
  Report Type: 
  Country: None (occurrence: None)
  Receive Date: 20080107
  Receipt Date: 20071228
  Transmission Date: 20080703
  Serious: Yes (Other)
  Sender: FDA-Public Use
  Company Number: PHBS2007BR21601

PATIENT
  Age: 25 Year
  Sex: Female
  Weight: 70 kg

DRUGS (3)
  1. TRILEPTAL [Suspect]
     Indication: TACHYCARDIA
     Dosage: 300 MG, BID
     Route: 048
     Dates: start: 20070911, end: 20070921
  2. PAROXETINE [Concomitant]
     Indication: DEPRESSION
     Dosage: 20 MG, QD
     Route: 048
     Dates: start: 20070919
  3. RIVOTRIL [Concomitant]
     Indication: INSOMNIA
     Dosage: 0.4 MG, QD
     Route: 048
     Dates: start: 20070919

REACTIONS (3)
  - BREAST DISCHARGE [None]
  - DEPRESSION [None]
  - HALLUCINATION [None]
